FAERS Safety Report 7272715-1 (Version None)
Quarter: 2011Q1

REPORT INFORMATION
  Report Type: 
  Country: None (occurrence: None)
  Receive Date: 20110203
  Receipt Date: 20110128
  Transmission Date: 20110831
  Serious: No
  Sender: FDA-Public Use
  Company Number: US-PFIZER INC-2011020813

PATIENT
  Sex: Male
  Weight: 39.909 kg

DRUGS (5)
  1. GINKGO BILOBA [Concomitant]
     Dosage: 60 MG, UNK
  2. ZINC [Concomitant]
     Dosage: 10 MG, UNK
  3. FISH OIL [Concomitant]
     Dosage: UNK
  4. MELATONIN [Concomitant]
     Dosage: 3 MG, UNK
  5. GENOTROPIN [Suspect]
     Dosage: 2.6 MG, SIX NIGHTS PER WEEK
     Route: 058

REACTIONS (1)
  - MYALGIA [None]
